FAERS Safety Report 9849531 (Version 1)
Quarter: 2014Q1

REPORT INFORMATION
  Report Type: Spontaneous
  Country: US (occurrence: None)
  Receive Date: 20140127
  Receipt Date: 20140127
  Transmission Date: 20141002
  Serious: Yes (Other)
  Sender: FDA-Public Use
  Company Number: None

PATIENT
  Age: 29 Year
  Sex: Male

DRUGS (1)
  1. ABILIFY [Suspect]
     Indication: SCHIZOPHRENIA
     Dosage: 20MG  TWICE DAILY  BY MOUTH
     Route: 048
     Dates: start: 20131203

REACTIONS (2)
  - Eye pain [None]
  - Eye movement disorder [None]
